FAERS Safety Report 19286553 (Version 1)
Quarter: 2021Q2

REPORT INFORMATION
  Report Type: Report from Study
  Country: BE (occurrence: BE)
  Receive Date: 20210522
  Receipt Date: 20210522
  Transmission Date: 20210717
  Serious: Yes (Hospitalization)
  Sender: FDA-Public Use
  Company Number: BE-B.I. PHARMACEUTICALS,INC./RIDGEFIELD-2019-BI-031976

PATIENT
  Age: 70 Year
  Sex: Male
  Weight: 57 kg

DRUGS (2)
  1. AFATINIB [Suspect]
     Active Substance: AFATINIB
  2. AFATINIB [Suspect]
     Active Substance: AFATINIB
     Indication: SQUAMOUS CELL CARCINOMA OF HEAD AND NECK
     Dosage: DOSE GIVEN AT LAST ADMINISTRATION(BEFORE SAE OCCURRED): 40MG
     Route: 048
     Dates: start: 20190522, end: 20190729

REACTIONS (1)
  - Gastroenteritis [Recovered/Resolved]

NARRATIVE: CASE EVENT DATE: 20190729
